FAERS Safety Report 7824830-9 (Version None)
Quarter: 2011Q4

REPORT INFORMATION
  Report Type: 
  Country: None (occurrence: None)
  Receive Date: 20111019
  Receipt Date: 20110214
  Transmission Date: 20120403
  Serious: No
  Sender: FDA-Public Use
  Company Number: US-BRISTOL-MYERS SQUIBB COMPANY-15537095

PATIENT
  Age: 58 Year
  Sex: Female

DRUGS (3)
  1. ASPIRIN [Concomitant]
  2. AVALIDE [Suspect]
  3. METFORMIN HCL [Concomitant]

REACTIONS (4)
  - HEADACHE [None]
  - MUSCULOSKELETAL PAIN [None]
  - NERVOUSNESS [None]
  - INITIAL INSOMNIA [None]
